FAERS Safety Report 8006372-3 (Version None)
Quarter: 2011Q4

REPORT INFORMATION
  Report Type: 
  Country: None (occurrence: None)
  Receive Date: 20111226
  Receipt Date: 20111212
  Transmission Date: 20120403
  Serious: Yes (Hospitalization, Other)
  Sender: FDA-Public Use
  Company Number: PHHY2011NZ107993

PATIENT
  Sex: Male
  Weight: 90 kg

DRUGS (1)
  1. CLOZARIL [Suspect]
     Indication: SCHIZOPHRENIA
     Dosage: 250 MG
     Dates: start: 20110920

REACTIONS (10)
  - TROPONIN INCREASED [None]
  - EJECTION FRACTION DECREASED [None]
  - BRAIN NATRIURETIC PEPTIDE INCREASED [None]
  - PALPITATIONS [None]
  - FATIGUE [None]
  - DIZZINESS [None]
  - ANGINA PECTORIS [None]
  - DYSPNOEA [None]
  - TACHYCARDIA [None]
  - HYPERHIDROSIS [None]
